FAERS Safety Report 11902157 (Version 5)
Quarter: 2016Q3

REPORT INFORMATION
  Report Type: Report from Study
  Country: US (occurrence: US)
  Receive Date: 20160108
  Receipt Date: 20160804
  Transmission Date: 20161109
  Serious: Yes (Hospitalization)
  Sender: FDA-Public Use
  Company Number: US-ACTELION-A-NJ2015-129484

PATIENT
  Age: 75 Year
  Sex: Female

DRUGS (4)
  1. TRACLEER [Suspect]
     Active Substance: BOSENTAN
     Indication: PULMONARY ARTERIAL HYPERTENSION
     Dosage: 125 MG, BID
     Route: 048
     Dates: start: 20130205
  2. TYVASO [Concomitant]
     Active Substance: TREPROSTINIL
  3. TRACLEER [Suspect]
     Active Substance: BOSENTAN
     Dosage: 125 MG, BID
     Route: 048
  4. SILDENAFIL. [Concomitant]
     Active Substance: SILDENAFIL

REACTIONS (4)
  - Transfusion [Unknown]
  - Blood count abnormal [Unknown]
  - Dizziness [Unknown]
  - Haemorrhoidal haemorrhage [Unknown]
